FAERS Safety Report 7252792-4 (Version None)
Quarter: 2011Q1

REPORT INFORMATION
  Report Type: 
  Country: None (occurrence: None)
  Receive Date: 20110129
  Receipt Date: 20100121
  Transmission Date: 20110831
  Serious: No
  Sender: FDA-Public Use
  Company Number: US-ABBOTT-10P-163-0620938-00

PATIENT
  Sex: Female
  Weight: 59.02 kg

DRUGS (1)
  1. HUMIRA [Suspect]
     Indication: PSORIASIS
     Dates: start: 20090121

REACTIONS (8)
  - ALOPECIA [None]
  - RASH PAPULAR [None]
  - HEADACHE [None]
  - OTORRHOEA [None]
  - WEIGHT DECREASED [None]
  - EYE DISCHARGE [None]
  - LYMPHADENOPATHY [None]
  - PYREXIA [None]
